FAERS Safety Report 6432132-0 (Version None)
Quarter: 2009Q4

REPORT INFORMATION
  Report Type: 
  Country: None (occurrence: None)
  Receive Date: 20091109
  Receipt Date: 20091028
  Transmission Date: 20100525
  Serious: Yes (Hospitalization)
  Sender: FDA-Public Use
  Company Number: DE-SOLVAY-00309005642

PATIENT
  Age: 39 Year
  Sex: Female

DRUGS (2)
  1. CREON [Suspect]
     Indication: DIARRHOEA
     Dosage: DAILY DOSE: 64000 INTERNATIONAL UNIT(S) LIPASE
     Route: 065
  2. CREON [Suspect]
     Dosage: DAILY DOSE:  UNKNOWN
     Route: 065

REACTIONS (2)
  - DIARRHOEA [None]
  - ENTERITIS [None]
